FAERS Safety Report 6440435-9 (Version None)
Quarter: 2009Q4

REPORT INFORMATION
  Report Type: 
  Country: None (occurrence: None)
  Receive Date: 20091113
  Receipt Date: 20091013
  Transmission Date: 20100525
  Serious: No
  Sender: FDA-Public Use
  Company Number: US-BAYER-200936254NA

PATIENT
  Age: 84 Year
  Sex: Female

DRUGS (1)
  1. AVELOX [Suspect]
     Indication: TOOTH EXTRACTION
     Dosage: UNIT DOSE: 400 MG
     Dates: start: 20091012

REACTIONS (4)
  - DIZZINESS [None]
  - FEELING ABNORMAL [None]
  - HYPERSENSITIVITY [None]
  - UNEVALUABLE EVENT [None]
